FAERS Safety Report 15133979 (Version 1)
Quarter: 2018Q3

REPORT INFORMATION
  Report Type: Spontaneous
  Country: US (occurrence: US)
  Receive Date: 20180712
  Receipt Date: 20180712
  Transmission Date: 20181010
  Serious: Yes (Other)
  Sender: FDA-Public Use
  Company Number: US-SA-2018SA179154

PATIENT
  Age: 54 Year
  Sex: Female

DRUGS (1)
  1. LANTUS SOLOSTAR [Suspect]
     Active Substance: INSULIN GLARGINE
     Dosage: 50 U, BID
     Route: 065

REACTIONS (8)
  - Bipolar disorder [Unknown]
  - Muscular weakness [Unknown]
  - Dyspnoea [Unknown]
  - White blood cell count increased [Unknown]
  - Hand fracture [Unknown]
  - Immune system disorder [Unknown]
  - Fatigue [Unknown]
  - Depression [Unknown]
